FAERS Safety Report 20623866 (Version 2)
Quarter: 2022Q2

REPORT INFORMATION
  Report Type: Spontaneous
  Country: IT (occurrence: IT)
  Receive Date: 20220322
  Receipt Date: 20220401
  Transmission Date: 20220721
  Serious: No
  Sender: FDA-Public Use
  Company Number: IT-BAUSCH-BL-2022-007368

PATIENT
  Age: 35 Year
  Sex: Male

DRUGS (5)
  1. PIMECROLIMUS [Suspect]
     Active Substance: PIMECROLIMUS
     Indication: Keratitis
     Dosage: FOR 10 DAYS
     Route: 061
  2. PIMECROLIMUS [Suspect]
     Active Substance: PIMECROLIMUS
     Dosage: FOR 30 DAYS
     Route: 061
  3. DEXAMETHASONE [Suspect]
     Active Substance: DEXAMETHASONE
     Indication: Keratitis
     Route: 050
  4. PREDNISONE [Suspect]
     Active Substance: PREDNISONE
     Indication: Keratitis
     Route: 050
  5. DUPILUMAB [Suspect]
     Active Substance: DUPILUMAB
     Indication: Dermatitis atopic
     Route: 065

REACTIONS (2)
  - Off label use [Unknown]
  - Treatment failure [Unknown]
